FAERS Safety Report 6896889-7 (Version None)
Quarter: 2010Q3

REPORT INFORMATION
  Report Type: 
  Country: None (occurrence: None)
  Receive Date: 20100802
  Receipt Date: 20070221
  Transmission Date: 20110219
  Serious: No
  Sender: FDA-Public Use
  Company Number: US-PFIZER INC-2007014432

PATIENT
  Sex: Male
  Weight: 87.1 kg

DRUGS (5)
  1. LYRICA [Suspect]
     Indication: PAIN
     Dates: start: 20060701
  2. LYRICA [Suspect]
     Indication: HYPOAESTHESIA
  3. GABAPENTIN [Suspect]
     Indication: PAIN
     Dates: start: 20060201, end: 20060701
  4. GABAPENTIN [Suspect]
     Indication: HYPOAESTHESIA
  5. LIDOCAINE [Concomitant]

REACTIONS (8)
  - DRUG INEFFECTIVE [None]
  - DRY MOUTH [None]
  - DYSGEUSIA [None]
  - FATIGUE [None]
  - GAIT DISTURBANCE [None]
  - OEDEMA PERIPHERAL [None]
  - VISION BLURRED [None]
  - WEIGHT INCREASED [None]
